FAERS Safety Report 10101702 (Version 1)
Quarter: 2014Q2

REPORT INFORMATION
  Report Type: Spontaneous
  Country: FR (occurrence: FR)
  Receive Date: 20140424
  Receipt Date: 20140424
  Transmission Date: 20141212
  Serious: Yes (Other)
  Sender: FDA-Public Use
  Company Number: FR-JNJFOC-20140411416

PATIENT
  Age: 83 Year
  Sex: Male

DRUGS (14)
  1. DUROGESIC [Suspect]
     Indication: PAIN
     Route: 062
     Dates: start: 20140109
  2. ACTISKENAN [Suspect]
     Indication: PAIN
     Route: 048
     Dates: start: 20140109, end: 20140113
  3. SKENAN [Suspect]
     Indication: PAIN
     Route: 048
     Dates: start: 20140113, end: 20140114
  4. MORPHINE [Suspect]
     Indication: PAIN
     Route: 042
     Dates: start: 20140114
  5. XANAX [Suspect]
     Indication: PRODUCT USED FOR UNKNOWN INDICATION
     Route: 048
     Dates: start: 20140109
  6. SPECIAFOLDINE [Suspect]
     Indication: PRODUCT USED FOR UNKNOWN INDICATION
     Route: 048
     Dates: start: 20140109
  7. TARDYFERON [Suspect]
     Indication: PRODUCT USED FOR UNKNOWN INDICATION
     Route: 048
     Dates: start: 20140109
  8. PARACETAMOL [Concomitant]
     Route: 065
  9. PERINDOPRIL [Concomitant]
     Route: 065
  10. ZOPICLONE [Concomitant]
     Route: 065
  11. KARDEGIC [Concomitant]
     Route: 065
  12. FRAGMINE [Concomitant]
     Route: 065
  13. INEXIUM [Concomitant]
     Route: 065
  14. DIFFU K [Concomitant]
     Route: 048

REACTIONS (3)
  - Paresis [Recovered/Resolved]
  - Vomiting [Recovered/Resolved]
  - Intestinal dilatation [Recovered/Resolved]
